FAERS Safety Report 9729978 (Version 3)
Quarter: 2013Q4

REPORT INFORMATION
  Report Type: Report from Study
  Country: DE (occurrence: DE)
  Receive Date: 20131204
  Receipt Date: 20131209
  Transmission Date: 20140711
  Serious: Yes (Hospitalization, Other)
  Sender: FDA-Public Use
  Company Number: PHHO2013DE014343

PATIENT
  Sex: 0

DRUGS (6)
  1. EVEROLIMUS [Suspect]
     Indication: RENAL TRANSPLANT
     Dosage: 3 MG, UNK
     Route: 048
     Dates: start: 20130919
  2. TACROLIMUS [Suspect]
     Indication: RENAL TRANSPLANT
     Dosage: 6 MG, UNK
     Dates: start: 20130919
  3. PREDNISON [Concomitant]
     Indication: RENAL TRANSPLANT
     Dosage: 15 MG, UNK
     Dates: start: 20130919
  4. SIMULECT [Concomitant]
     Indication: RENAL TRANSPLANT
     Dosage: 20 MG, UNK
     Dates: start: 20130919
  5. PANTOZOL [Concomitant]
     Indication: PROPHYLAXIS
     Dosage: 40 MG, UNK
     Dates: start: 20130923
  6. COTRIM FORTE [Concomitant]
     Indication: PROPHYLAXIS
     Dosage: 960 MG, UNK
     Dates: start: 20130923

REACTIONS (3)
  - C-reactive protein increased [Recovered/Resolved]
  - Complications of transplanted kidney [Unknown]
  - Pyelonephritis [Unknown]
